FAERS Safety Report 8178562-0 (Version None)
Quarter: 2012Q1

REPORT INFORMATION
  Report Type: 
  Country: None (occurrence: None)
  Receive Date: 20120301
  Receipt Date: 20120227
  Transmission Date: 20120608
  Serious: Yes (Death)
  Sender: FDA-Public Use
  Company Number: US-GILEAD-2012-0051257

PATIENT
  Sex: Female

DRUGS (11)
  1. LEVOTHYROXINE SODIUM [Concomitant]
  2. HUMALOG [Concomitant]
  3. POTASSIUM CHLORIDE [Concomitant]
  4. 70/30 MIX [Suspect]
  5. LETAIRIS [Suspect]
     Indication: PULMONARY HYPERTENSION
     Dosage: 10 MG, UNK
     Route: 048
     Dates: start: 20100310, end: 20120216
  6. LASIX [Concomitant]
  7. ADCIRCA [Concomitant]
  8. OXYGEN [Concomitant]
  9. OCUVITE                            /01053801/ [Concomitant]
  10. ATENOLOL [Concomitant]
  11. COUMADIN [Concomitant]

REACTIONS (20)
  - SEPSIS [None]
  - BLOOD BICARBONATE DECREASED [None]
  - BLOOD CREATININE INCREASED [None]
  - OXYGEN SATURATION DECREASED [None]
  - HAEMOGLOBIN DECREASED [None]
  - WHITE BLOOD CELL COUNT INCREASED [None]
  - ASPARTATE AMINOTRANSFERASE INCREASED [None]
  - UNRESPONSIVE TO STIMULI [None]
  - BLOOD PH DECREASED [None]
  - PROTHROMBIN TIME PROLONGED [None]
  - BLOOD SODIUM DECREASED [None]
  - BLOOD PRESSURE IMMEASURABLE [None]
  - PNEUMONIA [None]
  - PO2 DECREASED [None]
  - INTERNATIONAL NORMALISED RATIO INCREASED [None]
  - TACHYCARDIA [None]
  - CARDIO-RESPIRATORY ARREST [None]
  - HAEMATOCRIT DECREASED [None]
  - BLOOD GLUCOSE INCREASED [None]
  - BLOOD UREA INCREASED [None]
